FAERS Safety Report 17413595 (Version 1)
Quarter: 2020Q1

REPORT INFORMATION
  Report Type: Spontaneous
  Country: US (occurrence: US)
  Receive Date: 20200213
  Receipt Date: 20200213
  Transmission Date: 20200409
  Serious: Yes (Other)
  Sender: FDA-Public Use
  Company Number: None

PATIENT
  Age: 79 Year
  Sex: Female
  Weight: 90.45 kg

DRUGS (20)
  1. ATORVASTATIN [Concomitant]
     Active Substance: ATORVASTATIN
  2. CALCIUM [Concomitant]
     Active Substance: CALCIUM
  3. JANUVIA [Concomitant]
     Active Substance: SITAGLIPTIN PHOSPHATE
  4. LEVOTHYROXINE. [Concomitant]
     Active Substance: LEVOTHYROXINE
  5. MIRALAX [Concomitant]
     Active Substance: POLYETHYLENE GLYCOL 3350
  6. PIQRAY [Suspect]
     Active Substance: ALPELISIB
     Indication: BREAST CANCER
     Route: 048
     Dates: start: 20191031, end: 20191202
  7. ALLOPURINOL. [Concomitant]
     Active Substance: ALLOPURINOL
  8. METOPROLOL. [Concomitant]
     Active Substance: METOPROLOL
  9. TEMAZEPAM. [Concomitant]
     Active Substance: TEMAZEPAM
  10. LORAZEPAM. [Concomitant]
     Active Substance: LORAZEPAM
  11. PROCHLORPERAZINE. [Concomitant]
     Active Substance: PROCHLORPERAZINE
  12. DILTIAZEM. [Concomitant]
     Active Substance: DILTIAZEM
  13. DOCUSATE [Concomitant]
     Active Substance: DOCUSATE
  14. VITAMIN D [Concomitant]
     Active Substance: VITAMIN D NOS
  15. FASLODEX [Concomitant]
     Active Substance: FULVESTRANT
  16. AMLODIPINE [Concomitant]
     Active Substance: AMLODIPINE BESYLATE
  17. ASPIRIN. [Concomitant]
     Active Substance: ASPIRIN
  18. RAMIPRIL. [Concomitant]
     Active Substance: RAMIPRIL
  19. BACLOFEN. [Concomitant]
     Active Substance: BACLOFEN
  20. METFORMIN [Concomitant]
     Active Substance: METFORMIN HYDROCHLORIDE

REACTIONS (7)
  - Chills [None]
  - Diarrhoea [None]
  - Nausea [None]
  - Pruritus [None]
  - Superficial injury of eye [None]
  - Dyspnoea [None]
  - Foreign body sensation in eyes [None]

NARRATIVE: CASE EVENT DATE: 20191130
